FAERS Safety Report 24105757 (Version 1)
Quarter: 2024Q3

REPORT INFORMATION
  Report Type: Report from Study
  Country: US (occurrence: None)
  Receive Date: 20240717
  Receipt Date: 20240717
  Transmission Date: 20241017
  Serious: Yes (Hospitalization)
  Sender: ASTRAZENECA
  Company Number: 2019SF75969

PATIENT
  Sex: Male

DRUGS (1)
  1. TAGRISSO [Suspect]
     Active Substance: OSIMERTINIB
     Indication: Lung neoplasm malignant
     Route: 048

REACTIONS (7)
  - Cardiac disorder [Unknown]
  - Swelling [Unknown]
  - Fluid retention [Unknown]
  - Dry skin [Unknown]
  - Erythema [Unknown]
  - Visual impairment [Unknown]
  - Reading disorder [Unknown]
